FAERS Safety Report 11999249 (Version 2)
Quarter: 2016Q1

REPORT INFORMATION
  Report Type: Spontaneous
  Country: FI (occurrence: FI)
  Receive Date: 20160204
  Receipt Date: 20160208
  Transmission Date: 20160526
  Serious: Yes (Other)
  Sender: FDA-Public Use
  Company Number: FI-ROCHE-1705304

PATIENT
  Sex: Female

DRUGS (8)
  1. CALCICHEW [Concomitant]
     Active Substance: CALCIUM CARBONATE
     Route: 065
  2. SINGULAIR [Concomitant]
     Active Substance: MONTELUKAST SODIUM
     Route: 065
  3. HERCEPTIN [Suspect]
     Active Substance: TRASTUZUMAB
     Indication: PRODUCT USED FOR UNKNOWN INDICATION
     Route: 058
     Dates: start: 20150529
  4. PEGORION [Concomitant]
     Route: 065
  5. TRIPTYL [Concomitant]
     Active Substance: AMITRIPTYLINE HYDROCHLORIDE
     Route: 065
  6. PULMICORT TURBUHALER [Concomitant]
     Active Substance: BUDESONIDE
     Route: 065
  7. KESTINE [Concomitant]
     Active Substance: EBASTINE
     Dosage: AS NEEDED
     Route: 065
  8. LOSATRIX COMP [Concomitant]
     Dosage: 50/12.5 MG
     Route: 065

REACTIONS (1)
  - Injection site erythema [Not Recovered/Not Resolved]
